FAERS Safety Report 12758636 (Version 1)
Quarter: 2016Q3

REPORT INFORMATION
  Report Type: Spontaneous
  Country: US (occurrence: US)
  Receive Date: 20160918
  Receipt Date: 20160918
  Transmission Date: 20161109
  Serious: Yes (Life-Threatening, Hospitalization, Disabling)
  Sender: FDA-Public Use
  Company Number: None

PATIENT
  Age: 60 Year
  Sex: Female
  Weight: 72 kg

DRUGS (17)
  1. ALLOPURINOL. [Concomitant]
     Active Substance: ALLOPURINOL
  2. FOLIC ACID. [Concomitant]
     Active Substance: FOLIC ACID
  3. ACE INHIBITOR [Concomitant]
     Active Substance: UNSPECIFIED INGREDIENT
  4. MUCINEX [Concomitant]
     Active Substance: GUAIFENESIN
  5. DIAZEPAM. [Concomitant]
     Active Substance: DIAZEPAM
  6. TRAMADOL. [Concomitant]
     Active Substance: TRAMADOL
  7. ENOXAPARIN [Concomitant]
     Active Substance: ENOXAPARIN
  8. FISH OIL [Concomitant]
     Active Substance: FISH OIL
  9. ELIQUIS [Suspect]
     Active Substance: APIXABAN
     Indication: THROMBOSIS
     Route: 048
     Dates: start: 20141110, end: 20151118
  10. VITAMIN D3 [Concomitant]
     Active Substance: CHOLECALCIFEROL
  11. TOUJEO [Concomitant]
     Active Substance: INSULIN GLARGINE
  12. IRON [Concomitant]
     Active Substance: IRON
  13. STOOL SOFTENER [Concomitant]
     Active Substance: DOCUSATE CALCIUM
  14. STATIN [Concomitant]
     Active Substance: UNSPECIFIED INGREDIENT
  15. GENERIC ZANTAC [Concomitant]
  16. CALCIUM [Concomitant]
     Active Substance: CALCIUM
  17. MUCINEX [Concomitant]
     Active Substance: GUAIFENESIN

REACTIONS (2)
  - Cerebrovascular accident [None]
  - Transient ischaemic attack [None]

NARRATIVE: CASE EVENT DATE: 20151118
